FAERS Safety Report 24245367 (Version 1)
Quarter: 2024Q3

REPORT INFORMATION
  Report Type: Report from Study
  Country: US (occurrence: None)
  Receive Date: 20240824
  Receipt Date: 20240824
  Transmission Date: 20241017
  Serious: Yes (Other)
  Sender: ASTRAZENECA
  Company Number: 2024A190435

PATIENT
  Age: 25963 Day
  Sex: Male

DRUGS (1)
  1. FASENRA [Suspect]
     Active Substance: BENRALIZUMAB
     Indication: Asthma
     Route: 058
     Dates: start: 202306

REACTIONS (4)
  - Fall [Unknown]
  - Rib fracture [Unknown]
  - Fracture displacement [Unknown]
  - Bronchitis [Unknown]

NARRATIVE: CASE EVENT DATE: 20240501
